FAERS Safety Report 7647798-7 (Version None)
Quarter: 2011Q3

REPORT INFORMATION
  Report Type: 
  Country: None (occurrence: None)
  Receive Date: 20110726
  Receipt Date: 20110711
  Transmission Date: 20111222
  Serious: Yes (Hospitalization, Other)
  Sender: FDA-Public Use
  Company Number: AUR-APL-2011-04139

PATIENT
  Age: 71 Year
  Sex: Female

DRUGS (7)
  1. CALCICHEW D3 (LEKOVIT CA) [Concomitant]
  2. ACETAMINOPHEN [Concomitant]
  3. ENALAPRIL MALEATE [Concomitant]
  4. MAGNESIUM GLYCEROPHOSPHATE) [Concomitant]
  5. BENDROFLUMETHIAZIDE [Concomitant]
  6. AMLODIPINE [Concomitant]
  7. SIMVASTATIN [Suspect]
     Indication: PRODUCT USED FOR UNKNOWN INDICATION
     Dosage: 80 MG (80 MG, 1 IN 1 D), ORAL
     Route: 048
     Dates: start: 20110501, end: 20110101

REACTIONS (4)
  - RHABDOMYOLYSIS [None]
  - RENAL IMPAIRMENT [None]
  - MUSCULAR WEAKNESS [None]
  - FALL [None]
